FAERS Safety Report 11660200 (Version 3)
Quarter: 2015Q4

REPORT INFORMATION
  Report Type: Spontaneous
  Country: CA (occurrence: CA)
  Receive Date: 20151026
  Receipt Date: 20151223
  Transmission Date: 20160304
  Serious: Yes (Other)
  Sender: FDA-Public Use
  Company Number: US-ABBOTT MEDICAL OPTICS-1043370

PATIENT
  Age: 34 Year
  Sex: Female

DRUGS (1)
  1. BLINK TEARS [Suspect]
     Active Substance: POLYETHYLENE GLYCOL 400
     Indication: DRY EYE
     Route: 047

REACTIONS (2)
  - Eye pain [Recovered/Resolved]
  - Eye irritation [Recovered/Resolved]
